FAERS Safety Report 12784341 (Version 1)
Quarter: 2016Q3

REPORT INFORMATION
  Report Type: Spontaneous
  Country: CA (occurrence: CA)
  Receive Date: 20160927
  Receipt Date: 20160927
  Transmission Date: 20161109
  Serious: Yes (Other)
  Sender: FDA-Public Use
  Company Number: CA-BEH-200814400

PATIENT
  Age: 58 Year
  Sex: Female
  Weight: 37.79 kg

DRUGS (22)
  1. EZETIMIBE. [Concomitant]
     Active Substance: EZETIMIBE
     Dosage: DAILY DOSE QUANTITY: 10, DAILY DOSE UNIT: MG
     Route: 048
  2. SOLU-MEDROL [Concomitant]
     Active Substance: METHYLPREDNISOLONE SODIUM SUCCINATE
     Dosage: DAILY DOSE QUANTITY: 100, DAILY DOSE UNIT: MG
     Route: 040
     Dates: end: 20081113
  3. MYCOPHENOLIC ACID. [Concomitant]
     Active Substance: MYCOPHENOLIC ACID
     Dosage: DAILY DOSE QUANTITY: 720, DAILY DOSE UNIT: MG
     Route: 048
  4. OMEPRAZOLE. [Concomitant]
     Active Substance: OMEPRAZOLE
     Dosage: DAILY DOSE QUANTITY: 20, DAILY DOSE UNIT: MG
     Route: 048
  5. KCL SR [Concomitant]
     Dosage: DAILY DOSE QUANTITY: 1500, DAILY DOSE UNIT: MG
     Route: 048
  6. BACTRIM DS [Concomitant]
     Active Substance: SULFAMETHOXAZOLE\TRIMETHOPRIM
     Route: 048
  7. FUROSEMIDE. [Concomitant]
     Active Substance: FUROSEMIDE
     Dosage: DAILY DOSE QUANTITY: 40, DAILY DOSE UNIT: MG
     Route: 040
  8. METOPROLOL. [Concomitant]
     Active Substance: METOPROLOL
     Dosage: DAILY DOSE QUANTITY: 200, DAILY DOSE UNIT: MG
     Route: 048
  9. SOLU-MEDROL [Concomitant]
     Active Substance: METHYLPREDNISOLONE SODIUM SUCCINATE
  10. AMLODIPINE [Concomitant]
     Active Substance: AMLODIPINE BESYLATE
     Dosage: DAILY DOSE QUANTITY: 15, DAILY DOSE UNIT: MG
     Route: 048
  11. PIAVASTATIN [Concomitant]
     Dosage: DAILY DOSE QUANTITY: 60, DAILY DOSE UNIT: MG
     Route: 048
  12. ZOPICLONE [Concomitant]
     Active Substance: ZOPICLONE
     Dosage: DAILY DOSE QUANTITY: 7.5, DAILY DOSE UNIT: MG
     Route: 048
  13. SANDOGLOBULIN [Suspect]
     Active Substance: HUMAN IMMUNOGLOBULIN G
     Dosage: DAILY DOSE QUANTITY: 36, DAILY DOSE UNIT: G
     Route: 042
     Dates: start: 20081114, end: 20081116
  14. CIPROFLOXACIN. [Concomitant]
     Active Substance: CIPROFLOXACIN
     Dosage: DAILY DOSE QUANTITY: 500, DAILY DOSE UNIT: MG
     Route: 048
  15. VITAMIN D [Concomitant]
     Active Substance: CHOLECALCIFEROL
     Dosage: DAILY DOSE QUANTITY: 1000, DAILY DOSE UNIT: U
     Route: 048
  16. TACROLIMUS. [Concomitant]
     Active Substance: TACROLIMUS
     Dosage: DAILY DOSE QUANTITY: 1, DAILY DOSE UNIT: MG
     Route: 048
  17. SANDOGLOBULIN [Suspect]
     Active Substance: HUMAN IMMUNOGLOBULIN G
     Indication: TRANSPLANT REJECTION
     Dosage: DAILY DOSE QUANTITY: 36, DAILY DOSE UNIT: G
     Route: 042
     Dates: start: 20081113, end: 20081113
  18. ASA [Concomitant]
     Active Substance: ASPIRIN
     Dosage: DAILY DOSE QUANTITY: 81, DAILY DOSE UNIT: MG
     Route: 048
  19. CALCIUM CARBONATE. [Concomitant]
     Active Substance: CALCIUM CARBONATE
     Dosage: DAILY DOSE QUANTITY: 1500, DAILY DOSE UNIT: MG
     Route: 048
  20. METFORMIN [Concomitant]
     Active Substance: METFORMIN HYDROCHLORIDE
     Dosage: DAILY DOSE QUANTITY: 2500, DAILY DOSE UNIT: MG
     Route: 048
  21. PREDNISONE. [Concomitant]
     Active Substance: PREDNISONE
     Dosage: DAILY DOSE QUANTITY: 5, DAILY DOSE UNIT: MG
     Route: 048
  22. CLONAZEPAM. [Concomitant]
     Active Substance: CLONAZEPAM
     Dosage: DAILY DOSE QUANTITY: .5, DAILY DOSE UNIT: MG
     Route: 048

REACTIONS (6)
  - Heart rate increased [Recovered/Resolved]
  - Aspiration pleural cavity [Recovered/Resolved]
  - Palpitations [Recovered/Resolved]
  - Blood pressure increased [Recovered/Resolved]
  - Arrhythmia [Recovered/Resolved]
  - Pleural effusion [Recovered/Resolved]

NARRATIVE: CASE EVENT DATE: 20081113
